FAERS Safety Report 22155105 (Version 2)
Quarter: 2024Q2

REPORT INFORMATION
  Report Type: Spontaneous
  Country: FR (occurrence: FR)
  Receive Date: 20230330
  Receipt Date: 20240513
  Transmission Date: 20240716
  Serious: Yes (Hospitalization)
  Sender: FDA-Public Use
  Company Number: None

PATIENT
  Age: 69 Year
  Sex: Female

DRUGS (9)
  1. CARBOPLATIN [Suspect]
     Active Substance: CARBOPLATIN
     Indication: Ovarian cancer metastatic
     Dosage: C2
     Dates: start: 20230113, end: 20230510
  2. PACLITAXEL [Suspect]
     Active Substance: PACLITAXEL
     Indication: Ovarian cancer metastatic
     Dosage: C2
     Dates: start: 20230113, end: 20230510
  3. ACUPAN [Concomitant]
     Active Substance: NEFOPAM HYDROCHLORIDE
  4. DOLIPRANE [Concomitant]
     Active Substance: ACETAMINOPHEN
  5. SPASFON [Concomitant]
  6. NETUPITANT\PALONOSETRON HYDROCHLORIDE [Concomitant]
     Active Substance: NETUPITANT\PALONOSETRON HYDROCHLORIDE
     Dosage: 300 MG/0.5 MG, CAPSULE
  7. POLARAMINE [Concomitant]
     Active Substance: DEXCHLORPHENIRAMINE MALEATE
  8. METHYLPREDNISOLONE [Concomitant]
     Active Substance: METHYLPREDNISOLONE
  9. SPASFON [Concomitant]

REACTIONS (2)
  - Skin ulcer [Not Recovered/Not Resolved]
  - Skin necrosis [Not Recovered/Not Resolved]

NARRATIVE: CASE EVENT DATE: 20230216
